FAERS Safety Report 25282208 (Version 1)
Quarter: 2025Q2

REPORT INFORMATION
  Report Type: Spontaneous
  Country: US (occurrence: US)
  Receive Date: 20250508
  Receipt Date: 20250508
  Transmission Date: 20250716
  Serious: Yes (Hospitalization, Other)
  Sender: LP PHARMACEUTICALS INC
  Company Number: US-LP Pharmaceuticals Inc -2176379

PATIENT
  Age: 45 Year
  Sex: Female

DRUGS (2)
  1. ARIPIPRAZOLE [Suspect]
     Active Substance: ARIPIPRAZOLE
     Indication: Bipolar I disorder
  2. OXCARBAZEPINE [Interacting]
     Active Substance: OXCARBAZEPINE

REACTIONS (4)
  - Drug level below therapeutic [Unknown]
  - Off label use [Unknown]
  - Drug interaction [Unknown]
  - Manic symptom [Unknown]
